FAERS Safety Report 5737271-5 (Version None)
Quarter: 2008Q2

REPORT INFORMATION
  Report Type: 
  Country: None (occurrence: None)
  Receive Date: 20080512
  Receipt Date: 20080512
  Transmission Date: 20081010
  Serious: Yes (Life-Threatening, Disabling, Other)
  Sender: FDA-Public Use
  Company Number: None

PATIENT
  Sex: Female
  Weight: 56.6996 kg

DRUGS (2)
  1. DIGITEK 125 MCG NOT RETAINED [Suspect]
     Indication: HEART RATE IRREGULAR
     Dosage: 125 MCG PER DAY PO
     Route: 048
     Dates: start: 20070401, end: 20070701
  2. DIGITEK [Concomitant]

REACTIONS (9)
  - ASTHENIA [None]
  - DYSPNOEA [None]
  - ECHOCARDIOGRAM ABNORMAL [None]
  - ELECTROCARDIOGRAM ABNORMAL [None]
  - HEART RATE INCREASED [None]
  - HEART RATE IRREGULAR [None]
  - MALAISE [None]
  - PHARMACEUTICAL PRODUCT COMPLAINT [None]
  - VENOUS HAEMORRHAGE [None]
